FAERS Safety Report 22042386 (Version 1)
Quarter: 2023Q1

REPORT INFORMATION
  Report Type: Report from Study
  Country: NL (occurrence: None)
  Receive Date: 20230228
  Receipt Date: 20230228
  Transmission Date: 20230418
  Serious: Yes (Hospitalization)
  Sender: FDA-Public Use
  Company Number: NL-ROCHE-3287958

PATIENT
  Age: 49 Year
  Sex: Male
  Weight: 73.7 kg

DRUGS (19)
  1. EPCORITAMAB [Suspect]
     Active Substance: EPCORITAMAB
     Indication: Follicular lymphoma
     Dosage: PRIOR TO EVENT ONSET, THE PATIENT RECEIVED CYCLE 11 OF EPCORITAMAB WITH THE LATEST DOSE ADMINISTERED
     Route: 058
     Dates: start: 20220104, end: 20220104
  2. EPCORITAMAB [Suspect]
     Active Substance: EPCORITAMAB
     Route: 058
     Dates: start: 20220111, end: 20220111
  3. EPCORITAMAB [Suspect]
     Active Substance: EPCORITAMAB
     Route: 058
     Dates: start: 20220119, end: 20220224
  4. EPCORITAMAB [Suspect]
     Active Substance: EPCORITAMAB
     Dosage: (C3-C26)
     Route: 058
     Dates: start: 20220303, end: 20221110
  5. EPCORITAMAB [Suspect]
     Active Substance: EPCORITAMAB
     Dosage: (C3-C26)
     Route: 058
     Dates: start: 20221215
  6. RITUXIMAB [Suspect]
     Active Substance: RITUXIMAB
     Indication: Follicular lymphoma
     Dosage: 375 MILLIGRAM/SQ. METER
     Route: 042
     Dates: start: 20220104, end: 20220127
  7. RITUXIMAB [Suspect]
     Active Substance: RITUXIMAB
     Route: 042
     Dates: start: 20220203, end: 20220525
  8. LENALIDOMIDE [Suspect]
     Active Substance: LENALIDOMIDE
     Indication: Follicular lymphoma
     Route: 042
     Dates: start: 20220104, end: 20220907
  9. LENALIDOMIDE [Suspect]
     Active Substance: LENALIDOMIDE
     Route: 042
     Dates: start: 20220915, end: 20221005
  10. LENALIDOMIDE [Suspect]
     Active Substance: LENALIDOMIDE
     Route: 042
     Dates: start: 20221013, end: 20221102
  11. LENALIDOMIDE [Suspect]
     Active Substance: LENALIDOMIDE
     Route: 042
     Dates: start: 20221110, end: 20221130
  12. APIXABAN [Concomitant]
     Active Substance: APIXABAN
     Dates: start: 20220210
  13. CETIRIZINE [Concomitant]
     Active Substance: CETIRIZINE HYDROCHLORIDE
  14. METOCLOPRAMIDE [Concomitant]
     Active Substance: METOCLOPRAMIDE
     Dates: start: 20211231, end: 20221128
  15. PANTOPRAZOLE SODIUM [Concomitant]
     Active Substance: PANTOPRAZOLE SODIUM
     Dates: start: 20211231
  16. TRIAMCINOLONE ACETONIDE [Concomitant]
     Active Substance: TRIAMCINOLONE ACETONIDE
     Dates: start: 20220908, end: 20221127
  17. NADROPARIN [Concomitant]
     Active Substance: NADROPARIN
     Dates: start: 20221201, end: 20221207
  18. NANOGAM [Concomitant]
     Active Substance: HUMAN IMMUNOGLOBULIN G
     Dates: start: 20221207, end: 20221207
  19. POTASSIUM CHLORIDE [Concomitant]
     Active Substance: POTASSIUM CHLORIDE
     Dates: start: 20221127, end: 20221207

REACTIONS (1)
  - COVID-19 pneumonia [Recovered/Resolved]

NARRATIVE: CASE EVENT DATE: 20221101
